FAERS Safety Report 24206919 (Version 1)
Quarter: 2024Q3

REPORT INFORMATION
  Report Type: Other
  Country: IT (occurrence: IT)
  Receive Date: 20240813
  Receipt Date: 20240813
  Transmission Date: 20241017
  Serious: Yes (Hospitalization, Other)
  Sender: BIONPHARMA
  Company Number: IT-Bion-013645

PATIENT
  Age: 74 Year
  Sex: Male

DRUGS (2)
  1. DEXAMETHASONE [Suspect]
     Active Substance: DEXAMETHASONE
     Indication: COVID-19
  2. AZITHROMYCIN [Suspect]
     Active Substance: AZITHROMYCIN
     Indication: Antibiotic therapy
     Dosage: PER DAY
     Route: 048

REACTIONS (4)
  - Aspergillus infection [Recovered/Resolved]
  - Mucormycosis [Recovered/Resolved]
  - Osteonecrosis of jaw [Recovered/Resolved]
  - Off label use [Unknown]
